FAERS Safety Report 15630105 (Version 3)
Quarter: 2018Q4

REPORT INFORMATION
  Report Type: Spontaneous
  Country: DE (occurrence: DE)
  Receive Date: 20181118
  Receipt Date: 20181206
  Transmission Date: 20190205
  Serious: Yes (Other)
  Sender: FDA-Public Use
  Company Number: DE-TEVA-2018-DE-975605

PATIENT
  Age: 70 Year
  Sex: Male
  Weight: 77 kg

DRUGS (2)
  1. CIPROFLOXACIN. [Suspect]
     Active Substance: CIPROFLOXACIN
     Indication: DIVERTICULITIS
     Dates: start: 201407
  2. PREDNISOLON [Concomitant]
     Active Substance: PREDNISOLONE
     Dosage: 7 MILLIGRAM DAILY;

REACTIONS (4)
  - Polymyalgia rheumatica [Not Recovered/Not Resolved]
  - Pyrexia [Unknown]
  - Arthralgia [Not Recovered/Not Resolved]
  - Myalgia [Not Recovered/Not Resolved]

NARRATIVE: CASE EVENT DATE: 201410
